FAERS Safety Report 24568215 (Version 2)
Quarter: 2024Q4

REPORT INFORMATION
  Report Type: Report from Study
  Country: US (occurrence: US)
  Receive Date: 20241031
  Receipt Date: 20241106
  Transmission Date: 20250114
  Serious: Yes (Hospitalization, Other)
  Sender: ABBVIE
  Company Number: US-ABBVIE-5982060

PATIENT
  Age: 55 Year
  Sex: Female

DRUGS (4)
  1. CREON [Suspect]
     Active Substance: PANCRELIPASE AMYLASE\PANCRELIPASE LIPASE\PANCRELIPASE PROTEASE
     Indication: Product used for unknown indication
     Route: 048
     Dates: start: 20221024
  2. CREON [Suspect]
     Active Substance: PANCRELIPASE AMYLASE\PANCRELIPASE LIPASE\PANCRELIPASE PROTEASE
     Indication: Product used for unknown indication
     Dosage: LAST ADMIN DATE: 2022
     Route: 048
     Dates: start: 202204
  3. DILAUDID [Concomitant]
     Active Substance: HYDROMORPHONE HYDROCHLORIDE
     Indication: Product used for unknown indication
  4. FENTANYL [Concomitant]
     Active Substance: FENTANYL
     Indication: Product used for unknown indication

REACTIONS (17)
  - Pancreatic carcinoma [Recovered/Resolved]
  - Pancreatic carcinoma recurrent [Not Recovered/Not Resolved]
  - Drug ineffective [Unknown]
  - Hospitalisation [Unknown]
  - Abdominal pain [Unknown]
  - Flatulence [Unknown]
  - Gastrointestinal sounds abnormal [Unknown]
  - Pancreatic failure [Unknown]
  - Diarrhoea [Unknown]
  - Weight decreased [Unknown]
  - Confusional state [Unknown]
  - Infection [Unknown]
  - Obstruction [Unknown]
  - Whipple^s disease [Unknown]
  - Pancreaticoduodenectomy [Unknown]
  - Unevaluable event [Not Recovered/Not Resolved]
  - Malaise [Unknown]

NARRATIVE: CASE EVENT DATE: 20221024
